FAERS Safety Report 13273218 (Version 2)
Quarter: 2017Q1

REPORT INFORMATION
  Report Type: Report from Study
  Country: CA (occurrence: CA)
  Receive Date: 20170227
  Receipt Date: 20170324
  Transmission Date: 20170428
  Serious: Yes (Hospitalization, Other)
  Sender: FDA-Public Use
  Company Number: CA-JNJFOC-20170222864

PATIENT
  Sex: Female
  Weight: 47.6 kg

DRUGS (1)
  1. SIMPONI [Suspect]
     Active Substance: GOLIMUMAB
     Indication: RHEUMATOID ARTHRITIS
     Route: 058
     Dates: start: 20120419

REACTIONS (6)
  - Bronchitis [Unknown]
  - Vulvovaginal pain [Unknown]
  - Vaginal haemorrhage [Unknown]
  - Abdominal pain [Recovering/Resolving]
  - Vulvovaginal dryness [Unknown]
  - Uterine infection [Recovering/Resolving]
